FAERS Safety Report 5278561-2 (Version None)
Quarter: 2007Q1

REPORT INFORMATION
  Report Type: 
  Country: None (occurrence: None)
  Receive Date: 20061213
  Receipt Date: 20050526
  Transmission Date: 20070707
  Serious: No
  Sender: FDA-Public Use
  Company Number: 2005UW08333

PATIENT
  Age: 36 Year
  Sex: Male

DRUGS (2)
  1. SEROQUEL [Suspect]
     Dosage: LOW DOSE
     Dates: start: 20030127
  2. SEROQUEL [Suspect]
     Dosage: 750 MG PO
     Route: 048
     Dates: start: 20030601

REACTIONS (3)
  - BLOOD CHOLESTEROL INCREASED [None]
  - BLOOD GLUCOSE INCREASED [None]
  - BLOOD TRIGLYCERIDES INCREASED [None]
